FAERS Safety Report 5303870-8 (Version None)
Quarter: 2007Q1

REPORT INFORMATION
  Report Type: 
  Country: None (occurrence: None)
  Receive Date: 20070201
  Receipt Date: 20061124
  Transmission Date: 20070707
  Serious: No
  Sender: FDA-Public Use
  Company Number: 2006PV025830

PATIENT
  Age: 68 Year
  Sex: Male
  Weight: 101.6057 kg

DRUGS (13)
  1. BYETTA [Suspect]
     Indication: DIABETES MELLITUS NON-INSULIN-DEPENDENT
     Dosage: 5 MCG;BID;SC
     Route: 058
     Dates: start: 20061122
  2. METFORMIN HCL [Concomitant]
  3. GLYBURIDE [Concomitant]
  4. PRILOSEC [Concomitant]
  5. NORPACE [Concomitant]
  6. ATENOLOL [Concomitant]
  7. FUROSEMIDE [Concomitant]
  8. LISINOPRIL [Concomitant]
  9. GLYBURIDE [Concomitant]
  10. DIOVAN [Concomitant]
  11. ZOLOFT [Concomitant]
  12. ASPIRIN [Concomitant]
  13. METFORMIN HCL [Concomitant]

REACTIONS (5)
  - HEART RATE INCREASED [None]
  - INJECTION SITE HAEMORRHAGE [None]
  - NAUSEA [None]
  - VOMITING [None]
  - WEIGHT DECREASED [None]
